FAERS Safety Report 7341444-8 (Version None)
Quarter: 2011Q1

REPORT INFORMATION
  Report Type: 
  Country: None (occurrence: None)
  Receive Date: 20110228
  Receipt Date: 20110217
  Transmission Date: 20110831
  Serious: Yes (Death)
  Sender: FDA-Public Use
  Company Number: AE11-024

PATIENT
  Age: 61 Year
  Sex: Male

DRUGS (8)
  1. BENZTROPINE [Suspect]
  2. LISINOPRIL [Suspect]
  3. LORAZEPAM [Suspect]
  4. TEMAZEPAM [Suspect]
  5. DOXAZOSIN [Suspect]
  6. MIRTAZAPINE [Suspect]
  7. BENZONATATE [Suspect]
  8. RISPERIDONE [Suspect]

REACTIONS (3)
  - RESPIRATORY ARREST [None]
  - COMPLETED SUICIDE [None]
  - CARDIAC ARREST [None]
